FAERS Safety Report 23034536 (Version 1)
Quarter: 2023Q4

REPORT INFORMATION
  Report Type: Spontaneous
  Country: FR (occurrence: FR)
  Receive Date: 20231005
  Receipt Date: 20231005
  Transmission Date: 20240109
  Serious: Yes (Death)
  Sender: FDA-Public Use
  Company Number: None

PATIENT
  Age: 86 Year
  Sex: Male

DRUGS (2)
  1. CIPROFLOXACIN [Suspect]
     Active Substance: CIPROFLOXACIN
     Indication: Otitis externa
     Dates: start: 20230620, end: 20230718
  2. CEFTAZIDIME [Suspect]
     Active Substance: CEFTAZIDIME
     Indication: Otitis externa
     Dates: start: 20230620, end: 20230718

REACTIONS (6)
  - Confusional state [Fatal]
  - Acute respiratory failure [Fatal]
  - Supraventricular tachycardia [Fatal]
  - Acute kidney injury [Fatal]
  - Product prescribing error [Fatal]
  - Transcription medication error [Fatal]

NARRATIVE: CASE EVENT DATE: 20230501
